FAERS Safety Report 10177136 (Version 1)
Quarter: 2014Q2

REPORT INFORMATION
  Report Type: Spontaneous
  Country: US (occurrence: US)
  Receive Date: 20140516
  Receipt Date: 20140516
  Transmission Date: 20141212
  Serious: No
  Sender: FDA-Public Use
  Company Number: US-BAYER-2014-072418

PATIENT
  Sex: Female

DRUGS (1)
  1. STIVARGA [Suspect]
     Dosage: UNK
     Dates: start: 20140503, end: 20140506

REACTIONS (2)
  - Myalgia [Recovering/Resolving]
  - Abdominal pain upper [Recovering/Resolving]
